FAERS Safety Report 23507273 (Version 2)
Quarter: 2024Q2

REPORT INFORMATION
  Report Type: Report from Study
  Country: US (occurrence: US)
  Receive Date: 20240209
  Receipt Date: 20240514
  Transmission Date: 20240716
  Serious: No
  Sender: FDA-Public Use
  Company Number: US-ACADIA PHARMACEUTICALS INC.-ACA-2024-PIM-000272

PATIENT
  Age: 80 Year
  Sex: Male

DRUGS (37)
  1. NUPLAZID [Suspect]
     Active Substance: PIMAVANSERIN TARTRATE
     Indication: Parkinson^s disease
     Dosage: 34 MILLIGRAM, QD
     Route: 048
     Dates: start: 20240118
  2. NUPLAZID [Suspect]
     Active Substance: PIMAVANSERIN TARTRATE
     Indication: Parkinson^s disease psychosis
     Dosage: 34 MILLIGRAM, QD
     Route: 048
     Dates: start: 202402
  3. NUPLAZID [Suspect]
     Active Substance: PIMAVANSERIN TARTRATE
     Dosage: 34 MILLIGRAM, QD
     Route: 048
     Dates: start: 202404, end: 20240503
  4. KLONOPIN [Concomitant]
     Active Substance: CLONAZEPAM
  5. PLAVIX [Concomitant]
     Active Substance: CLOPIDOGREL BISULFATE
  6. LITHIUM [Concomitant]
     Active Substance: LITHIUM
  7. MYRBETRIQ [Concomitant]
     Active Substance: MIRABEGRON
  8. LATANOPROST [Concomitant]
     Active Substance: LATANOPROST
  9. VITAMIN B6 [Concomitant]
     Active Substance: PYRIDOXINE HYDROCHLORIDE
  10. MIRALAX [Concomitant]
     Active Substance: POLYETHYLENE GLYCOL 3350
  11. ENEMA [SODIUM CHLORIDE] [Concomitant]
  12. VITAMIN D3 [Concomitant]
     Active Substance: CHOLECALCIFEROL
  13. BIFIDOBACTERIUM LONGUM\LACTOBACILLUS ACIDOPHILUS\LACTOBACILLUS RHAMNOS [Concomitant]
     Active Substance: BIFIDOBACTERIUM LONGUM\LACTOBACILLUS ACIDOPHILUS\LACTOBACILLUS RHAMNOSUS
     Dosage: 10 B CELL
  14. RIVASTIGMINE [Concomitant]
     Active Substance: RIVASTIGMINE
  15. PRAVASTATIN SODIUM [Concomitant]
     Active Substance: PRAVASTATIN SODIUM
  16. LEVOTHYROXINE SODIUM [Concomitant]
     Active Substance: LEVOTHYROXINE SODIUM
  17. APOKYN [Concomitant]
     Active Substance: APOMORPHINE HYDROCHLORIDE
  18. NOURIANZ [Concomitant]
     Active Substance: ISTRADEFYLLINE
  19. MIDODRINE HYDROCHLORIDE [Concomitant]
     Active Substance: MIDODRINE HYDROCHLORIDE
  20. CLOBETASOL PROPIONATE [Concomitant]
     Active Substance: CLOBETASOL PROPIONATE
  21. MOTEGRITY [Concomitant]
     Active Substance: PRUCALOPRIDE SUCCINATE
  22. FOLIC ACID [Concomitant]
     Active Substance: FOLIC ACID
  23. DEXAMETHASONE [Concomitant]
     Active Substance: DEXAMETHASONE
  24. FAMOTIDINE [Concomitant]
     Active Substance: FAMOTIDINE
  25. NUEDEXTA [Concomitant]
     Active Substance: DEXTROMETHORPHAN HYDROBROMIDE\QUINIDINE SULFATE
  26. RYTARY [Concomitant]
     Active Substance: CARBIDOPA\LEVODOPA
  27. CHLORHEXIDINE GLUCONATE [Concomitant]
     Active Substance: CHLORHEXIDINE GLUCONATE
  28. SODIUM FLUORIDE [Concomitant]
     Active Substance: SODIUM FLUORIDE\SODIUM MONOFLUOROPHOSPHATE
  29. ONGENTYS [Concomitant]
     Active Substance: OPICAPONE
  30. ATROPINE SULFATE [Concomitant]
     Active Substance: ATROPINE SULFATE
  31. MAGNESIUM [Concomitant]
     Active Substance: MAGNESIUM
  32. B12 ACTIVE [Concomitant]
  33. DUTASTERIDE [Concomitant]
     Active Substance: DUTASTERIDE
  34. MAGNESIUM OXIDE [Concomitant]
     Active Substance: MAGNESIUM OXIDE
  35. LITHIUM CARBONATE [Concomitant]
     Active Substance: LITHIUM CARBONATE
  36. DOXYCYCLINE HYCLATE [Concomitant]
     Active Substance: DOXYCYCLINE HYCLATE
  37. PENICILLIN V POTASSIUM [Concomitant]
     Active Substance: PENICILLIN V POTASSIUM

REACTIONS (2)
  - Dysphagia [Not Recovered/Not Resolved]
  - Dysgraphia [Not Recovered/Not Resolved]

NARRATIVE: CASE EVENT DATE: 20240503
